FAERS Safety Report 7315456-4 (Version None)
Quarter: 2011Q1

REPORT INFORMATION
  Report Type: 
  Country: None (occurrence: None)
  Receive Date: 20110225
  Receipt Date: 20110215
  Transmission Date: 20110831
  Serious: Yes (Other)
  Sender: FDA-Public Use
  Company Number: DE-ELI_LILLY_AND_COMPANY-DE201102003830

PATIENT
  Sex: Female

DRUGS (6)
  1. IBUPROFEN [Concomitant]
     Dosage: UNK, UNK
  2. BYETTA [Suspect]
     Indication: TYPE 2 DIABETES MELLITUS
     Dosage: 10 UG, UNK
     Route: 058
     Dates: start: 20101111
  3. DICLOFENAC [Concomitant]
  4. BISOHEXAL [Concomitant]
     Dosage: 10/25 MG
  5. ALLOPURINOL [Concomitant]
     Dosage: 300 MG, UNK
  6. METFORMIN HCL [Concomitant]
     Dosage: 800 MG, UNK

REACTIONS (7)
  - SYNCOPE [None]
  - HEADACHE [None]
  - FOOD AVERSION [None]
  - VOMITING [None]
  - ABDOMINAL PAIN UPPER [None]
  - YELLOW SKIN [None]
  - DIARRHOEA [None]
